FAERS Safety Report 19749449 (Version 1)
Quarter: 2021Q3

REPORT INFORMATION
  Report Type: Spontaneous
  Country: US (occurrence: US)
  Receive Date: 20210826
  Receipt Date: 20210826
  Transmission Date: 20211014
  Serious: Yes (Hospitalization)
  Sender: FDA-Public Use
  Company Number: None

PATIENT
  Age: 68 Year
  Sex: Female
  Weight: 63.5 kg

DRUGS (2)
  1. EVEN ITY [Concomitant]
     Dates: start: 20210511, end: 20210819
  2. EVENITY [Suspect]
     Active Substance: ROMOSOZUMAB-AQQG
     Indication: OSTEOPOROSIS POSTMENOPAUSAL
     Route: 058
     Dates: start: 20210511

REACTIONS (1)
  - Hepatic lesion [None]

NARRATIVE: CASE EVENT DATE: 20210619
